FAERS Safety Report 17516693 (Version 1)
Quarter: 2020Q1

REPORT INFORMATION
  Report Type: Spontaneous
  Country: DE (occurrence: DE)
  Receive Date: 20200309
  Receipt Date: 20200309
  Transmission Date: 20200409
  Serious: Yes (Other)
  Sender: FDA-Public Use
  Company Number: NVSC2020DE060201

PATIENT
  Age: 63 Year
  Sex: Female
  Weight: 83 kg

DRUGS (7)
  1. FLUOROURACIL. [Suspect]
     Active Substance: FLUOROURACIL
     Indication: COLORECTAL CANCER METASTATIC
     Dosage: 4575 MG
     Route: 042
     Dates: start: 20190902
  2. OXALIPLATIN. [Suspect]
     Active Substance: OXALIPLATIN
     Indication: COLORECTAL CANCER METASTATIC
     Dosage: 160 MG
     Route: 065
     Dates: start: 20190902
  3. VECTIBIX [Suspect]
     Active Substance: PANITUMUMAB
     Indication: COLORECTAL CANCER METASTATIC
     Dosage: 500 MG
     Route: 042
     Dates: start: 20190918
  4. FLUOROURACIL. [Suspect]
     Active Substance: FLUOROURACIL
     Dosage: 3650 MG
     Route: 042
     Dates: start: 20191118
  5. FLUOROURACIL. [Suspect]
     Active Substance: FLUOROURACIL
     Dosage: 760 MG
     Route: 040
     Dates: start: 20190902
  6. FOLINIC ACID [Suspect]
     Active Substance: LEUCOVORIN
     Indication: COLORECTAL CANCER METASTATIC
     Dosage: 760 MG
     Route: 065
     Dates: start: 20190902
  7. FOLINIC ACID [Suspect]
     Active Substance: LEUCOVORIN
     Dosage: 610 MG
     Route: 065
     Dates: start: 20191118

REACTIONS (1)
  - Polyneuropathy [Not Recovered/Not Resolved]

NARRATIVE: CASE EVENT DATE: 20191016
